FAERS Safety Report 24957966 (Version 1)
Quarter: 2025Q1

REPORT INFORMATION
  Report Type: Spontaneous
  Country: US (occurrence: US)
  Receive Date: 20250212
  Receipt Date: 20250212
  Transmission Date: 20250409
  Serious: No
  Sender: BRISTOL-MYERS SQUIBB COMPANY
  Company Number: US-BRISTOL-MYERS SQUIBB COMPANY-2025-020121

PATIENT
  Age: 47 Year
  Sex: Female
  Weight: 90.72 kg

DRUGS (2)
  1. ELIQUIS [Suspect]
     Active Substance: APIXABAN
     Indication: Pulmonary embolism
     Route: 048
     Dates: start: 20250119
  2. PREDNISONE [Concomitant]
     Active Substance: PREDNISONE
     Indication: Product used for unknown indication

REACTIONS (6)
  - Pain in extremity [Unknown]
  - Gout [Unknown]
  - Gait disturbance [Unknown]
  - Bone pain [Unknown]
  - Arthralgia [Unknown]
  - Emergency care examination [Unknown]

NARRATIVE: CASE EVENT DATE: 20250101
